FAERS Safety Report 21591896 (Version 5)
Quarter: 2023Q4

REPORT INFORMATION
  Report Type: Spontaneous
  Country: CA (occurrence: CA)
  Receive Date: 20221114
  Receipt Date: 20231121
  Transmission Date: 20240109
  Serious: Yes (Other)
  Sender: FDA-Public Use
  Company Number: CA-PFIZER INC-202101151957

PATIENT
  Age: 74 Year
  Sex: Female
  Weight: 46 kg

DRUGS (10)
  1. RUXIENCE [Suspect]
     Active Substance: RITUXIMAB-PVVR
     Indication: Rheumatoid arthritis
     Dosage: DAY 1 EVERY 6 MONTHS: 255-MINUTE INFUSION X 1000MG
     Route: 042
     Dates: start: 20211025, end: 20211025
  2. RUXIENCE [Suspect]
     Active Substance: RITUXIMAB-PVVR
     Dosage: DAY 1 EVERY 6 MONTHS: 255-MINUTE INFUSION X 1000MG
     Route: 042
     Dates: start: 20211125
  3. RUXIENCE [Suspect]
     Active Substance: RITUXIMAB-PVVR
     Dosage: DAY1, DAY15, EVERY 6 MONTHS, ON HOLD
     Route: 042
     Dates: start: 20220512, end: 20220512
  4. RUXIENCE [Suspect]
     Active Substance: RITUXIMAB-PVVR
     Dosage: DAY1, DAY15, EVERY 6 MONTHS, ON HOLD
     Route: 042
     Dates: start: 20220512, end: 20220525
  5. RUXIENCE [Suspect]
     Active Substance: RITUXIMAB-PVVR
     Dosage: DAY1, DAY15 EVERY 6 MONTHS
     Route: 042
     Dates: start: 20220525
  6. AMLODIPINE [Concomitant]
     Active Substance: AMLODIPINE BESYLATE
     Dosage: 1 DF, DOSAGE NOT AVAILABLE
     Route: 065
  7. FOLIC ACID [Concomitant]
     Active Substance: FOLIC ACID
     Dosage: 1 DF, DOSAGE NOT AVAILABLE
     Route: 065
  8. OXYQUINOLINE [Concomitant]
     Active Substance: OXYQUINOLINE
     Dosage: 1 DF, DOSAGE NOT AVAILABLE
     Route: 065
  9. METHOTREXATE [Concomitant]
     Active Substance: METHOTREXATE
     Dosage: 1 DF, DOSAGE NOT AVAILABLE
     Route: 065
  10. VITAMIN B COMPLEX [NICOTINAMIDE] [Concomitant]
     Dosage: 1 DF, DOSAGE NOT AVAILABLE
     Route: 065

REACTIONS (10)
  - Lung carcinoma cell type unspecified stage III [Not Recovered/Not Resolved]
  - Myocardial infarction [Unknown]
  - Bladder neoplasm [Unknown]
  - Condition aggravated [Unknown]
  - Malaise [Unknown]
  - Lung disorder [Unknown]
  - Dyspnoea [Unknown]
  - Off label use [Unknown]
  - Off label use [Unknown]
  - Intentional product use issue [Unknown]

NARRATIVE: CASE EVENT DATE: 20211025
